FAERS Safety Report 6231828-3 (Version None)
Quarter: 2009Q2

REPORT INFORMATION
  Report Type: 
  Country: None (occurrence: None)
  Receive Date: 20090611
  Receipt Date: 20090611
  Transmission Date: 20091009
  Serious: No
  Sender: FDA-Public Use
  Company Number: None

PATIENT
  Age: 26 Year
  Sex: Female
  Weight: 51.8 kg

DRUGS (4)
  1. NORCO [Suspect]
     Indication: ABDOMINAL PAIN
     Dosage: 5-325 MGB TAB EVERY 4-6 HOURS ORAL
     Route: 048
     Dates: start: 20090601
  2. NORCO [Suspect]
     Indication: ENDOMETRIOSIS
     Dosage: 5-325 MGB TAB EVERY 4-6 HOURS ORAL
     Route: 048
     Dates: start: 20090601
  3. NORCO [Suspect]
     Indication: ABDOMINAL PAIN
     Dosage: 5-325 MGB TAB EVERY 4-6 HOURS ORAL
     Route: 048
     Dates: start: 20090602
  4. NORCO [Suspect]
     Indication: ENDOMETRIOSIS
     Dosage: 5-325 MGB TAB EVERY 4-6 HOURS ORAL
     Route: 048
     Dates: start: 20090602

REACTIONS (3)
  - DRUG INEFFECTIVE [None]
  - EMOTIONAL DISTRESS [None]
  - PRODUCT SUBSTITUTION ISSUE [None]
